FAERS Safety Report 6151787-1 (Version None)
Quarter: 2009Q2

REPORT INFORMATION
  Report Type: 
  Country: None (occurrence: None)
  Receive Date: 20090410
  Receipt Date: 20090403
  Transmission Date: 20091009
  Serious: Yes (Other)
  Sender: FDA-Public Use
  Company Number: US-ELI_LILLY_AND_COMPANY-US200904001019

PATIENT
  Age: 47 Year
  Sex: Female

DRUGS (3)
  1. XIGRIS [Suspect]
     Indication: SEPSIS
     Dates: start: 20090321, end: 20090324
  2. HAEMODIALYTICS AND HAEMOFILTRATES [Concomitant]
  3. OXYGEN [Concomitant]
     Dates: start: 20090101

REACTIONS (5)
  - BLOOD CREATININE ABNORMAL [None]
  - BLOOD UREA ABNORMAL [None]
  - CLOSTRIDIUM DIFFICILE COLITIS [None]
  - SEPSIS [None]
  - WHITE BLOOD CELL COUNT INCREASED [None]
